FAERS Safety Report 7540667-2 (Version None)
Quarter: 2011Q2

REPORT INFORMATION
  Report Type: 
  Country: None (occurrence: None)
  Receive Date: 20110610
  Receipt Date: 20110531
  Transmission Date: 20111010
  Serious: Yes (Hospitalization)
  Sender: FDA-Public Use
  Company Number: JP-ASTRAZENECA-2011SE31461

PATIENT
  Age: 9451 Day
  Sex: Female

DRUGS (11)
  1. DORAL [Suspect]
     Route: 048
     Dates: start: 20110501, end: 20110501
  2. PROMETHAZINE HCL [Suspect]
     Route: 048
     Dates: start: 20110501, end: 20110501
  3. NITRAZEPAM [Suspect]
     Route: 048
  4. NITRAZEPAM [Suspect]
     Route: 048
     Dates: start: 20110501, end: 20110501
  5. PROMETHAZINE HCL [Suspect]
     Route: 048
  6. PURSENIDE [Suspect]
     Route: 048
  7. ZOLPIDEM [Suspect]
     Route: 048
  8. PURSENIDE [Suspect]
     Route: 048
     Dates: start: 20110501, end: 20110501
  9. SEROQUEL [Suspect]
     Indication: SCHIZOPHRENIA
     Route: 048
     Dates: start: 20110501, end: 20110501
  10. DORAL [Suspect]
     Route: 048
  11. PL GRAN. [Suspect]
     Route: 048

REACTIONS (2)
  - MULTIPLE DRUG OVERDOSE INTENTIONAL [None]
  - PNEUMONIA [None]
